FAERS Safety Report 15513983 (Version 1)
Quarter: 2018Q4

REPORT INFORMATION
  Report Type: Spontaneous
  Country: US (occurrence: US)
  Receive Date: 20181016
  Receipt Date: 20181016
  Transmission Date: 20190205
  Serious: No
  Sender: FDA-Public Use
  Company Number: US-AMGEN-USASP2018114007

PATIENT
  Age: 60 Year
  Sex: Female

DRUGS (6)
  1. NEULASTA [Suspect]
     Active Substance: PEGFILGRASTIM
     Dosage: 6 MG, Q2WK (WITH EACH CHEMOTHERAPY CYCLE)
     Route: 065
     Dates: start: 20180815
  2. 5-FU [Concomitant]
     Active Substance: FLUOROURACIL
     Dosage: UNK UNK, Q2WK
  3. OXALIPLATIN. [Concomitant]
     Active Substance: OXALIPLATIN
     Dosage: UNK UNK, Q2WK
  4. NEULASTA [Suspect]
     Active Substance: PEGFILGRASTIM
     Indication: NEUTROPENIA
     Dosage: 6 MG, Q2WK (WITH EACH CHEMOTHERAPY CYCLE)
     Route: 065
     Dates: end: 201807
  5. FOLINIC ACID [Concomitant]
     Active Substance: LEUCOVORIN
     Dosage: UNK UNK, Q2WK
  6. IRINOTECAN [Concomitant]
     Active Substance: IRINOTECAN
     Dosage: UNK UNK, Q2WK

REACTIONS (1)
  - Platelet count decreased [Recovering/Resolving]

NARRATIVE: CASE EVENT DATE: 2018
